FAERS Safety Report 4275713-5 (Version None)
Quarter: 2004Q1

REPORT INFORMATION
  Report Type: 
  Country: None (occurrence: None)
  Receive Date: 20040116
  Receipt Date: 20040106
  Transmission Date: 20041129
  Serious: Yes (Hospitalization)
  Sender: FDA-Public Use
  Company Number: US-JNJFOC-20040100802

PATIENT
  Age: 58 Year
  Sex: Female
  Weight: 81.6475 kg

DRUGS (6)
  1. REMICADE [Suspect]
     Indication: RHEUMATOID ARTHRITIS
     Dosage: INTRAVENOUS
     Route: 042
     Dates: start: 20031001
  2. NAPROXEN [Concomitant]
  3. PREMARIN [Concomitant]
  4. METHOTREXATE [Concomitant]
  5. ZESTRIL [Concomitant]
  6. CYTOTEC [Concomitant]

REACTIONS (7)
  - ASTHENIA [None]
  - CELLULITIS [None]
  - FEELING ABNORMAL [None]
  - INFLUENZA [None]
  - NAUSEA [None]
  - PNEUMONIA LEGIONELLA [None]
  - RESPIRATORY FAILURE [None]
